FAERS Safety Report 4462647-6 (Version None)
Quarter: 2004Q3

REPORT INFORMATION
  Report Type: 
  Country: None (occurrence: None)
  Receive Date: 20040929
  Receipt Date: 20040920
  Transmission Date: 20050211
  Serious: No
  Sender: FDA-Public Use
  Company Number: 163-20785-04080349

PATIENT
  Age: 76 Year
  Sex: Male

DRUGS (3)
  1. THALOMID [Suspect]
     Indication: MULTIPLE MYELOMA
     Dosage: 150 MG, DAILY, ORAL
     Route: 048
     Dates: start: 20040529, end: 20040705
  2. DEXAMETHASONE [Concomitant]
  3. GLYBURIDE (GLYIBENCLAMIDE) [Concomitant]

REACTIONS (6)
  - BLOOD GLUCOSE FLUCTUATION [None]
  - GANGRENE [None]
  - HAEMATOMA [None]
  - LIMB INJURY [None]
  - PAIN IN EXTREMITY [None]
  - VASCULITIS [None]
